FAERS Safety Report 18912440 (Version 1)
Quarter: 2021Q1

REPORT INFORMATION
  Report Type: Report from Study
  Country: None (occurrence: CA)
  Receive Date: 20210219
  Receipt Date: 20210219
  Transmission Date: 20210420
  Serious: Yes (Other)
  Sender: FDA-Public Use
  Company Number: CA-ABBVIE-20K-028-3618618-00

PATIENT
  Age: 65 Year
  Sex: Female

DRUGS (3)
  1. HUMIRA [Suspect]
     Active Substance: ADALIMUMAB
     Indication: ANKYLOSING SPONDYLITIS
     Route: 058
     Dates: start: 20190826
  2. HUMIRA [Suspect]
     Active Substance: ADALIMUMAB
     Route: 058
     Dates: start: 202101
  3. HUMIRA [Suspect]
     Active Substance: ADALIMUMAB
     Route: 058
     Dates: start: 2020, end: 202011

REACTIONS (9)
  - Musculoskeletal discomfort [Unknown]
  - Therapeutic product effect decreased [Unknown]
  - Post procedural infection [Recovered/Resolved]
  - Staphylococcal infection [Recovered/Resolved]
  - Fibromyalgia [Unknown]
  - Pneumonia [Recovered/Resolved]
  - Joint instability [Unknown]
  - Complication associated with device [Recovered/Resolved]
  - Iatrogenic injury [Unknown]

NARRATIVE: CASE EVENT DATE: 2019
